FAERS Safety Report 12988089 (Version 1)
Quarter: 2016Q4

REPORT INFORMATION
  Report Type: Report from Study
  Country: ES (occurrence: ES)
  Receive Date: 20161130
  Receipt Date: 20161130
  Transmission Date: 20170207
  Serious: Yes (Other)
  Sender: FDA-Public Use
  Company Number: ES-MYLANLABS-2016M1051772

PATIENT

DRUGS (8)
  1. FLUOROURACIL. [Suspect]
     Active Substance: FLUOROURACIL
     Indication: COLON CANCER METASTATIC
     Dosage: 2400 MG/M2 ON DAY 1 IN A 14-DAY CYCLE, CONTINUOUS INFUSION
     Route: 065
     Dates: start: 201206
  2. FLUOROURACIL. [Suspect]
     Active Substance: FLUOROURACIL
     Indication: ADENOCARCINOMA OF COLON
     Dosage: 400 MG/M2 ON DAY 1 IN A 14-DAY CYCLE, BOLUS
     Route: 065
     Dates: start: 201206
  3. IRINOTECAN [Suspect]
     Active Substance: IRINOTECAN
     Indication: COLON CANCER METASTATIC
  4. IRINOTECAN [Suspect]
     Active Substance: IRINOTECAN
     Indication: ADENOCARCINOMA OF COLON
     Dosage: 180 MG/M2 ON DAY 1 IN A 14-DAY CYCLE
     Route: 065
     Dates: start: 201206
  5. FOLINIC ACID [Suspect]
     Active Substance: LEUCOVORIN
     Indication: COLON CANCER METASTATIC
  6. AFLIBERCEPT [Suspect]
     Active Substance: AFLIBERCEPT
     Indication: COLON CANCER METASTATIC
  7. AFLIBERCEPT [Suspect]
     Active Substance: AFLIBERCEPT
     Indication: ADENOCARCINOMA OF COLON
     Dosage: 4 MG/KG ON DAY 1 IN A 14-DAY CYCLE
     Route: 065
  8. FOLINIC ACID [Suspect]
     Active Substance: LEUCOVORIN
     Indication: ADENOCARCINOMA OF COLON
     Dosage: 200 MG/M2 ON DAY 1 IN A 14-DAY CYCLE
     Route: 065
     Dates: start: 201206

REACTIONS (7)
  - Neurotoxicity [Unknown]
  - Back pain [Unknown]
  - Neutropenia [Unknown]
  - Hypertension [Recovering/Resolving]
  - Mucosal inflammation [Unknown]
  - Pharyngotonsillitis [Recovering/Resolving]
  - Infusion related reaction [Unknown]
